FAERS Safety Report 9235058 (Version 5)
Quarter: 2013Q2

REPORT INFORMATION
  Report Type: Report from Study
  Country: US (occurrence: US)
  Receive Date: 20130416
  Receipt Date: 20130507
  Transmission Date: 20140414
  Serious: Yes (Hospitalization)
  Sender: FDA-Public Use
  Company Number: US-PFIZER INC-2013120305

PATIENT
  Age: 86 Year
  Sex: Female

DRUGS (4)
  1. APIXABAN [Suspect]
     Indication: THROMBOSIS PROPHYLAXIS
     Dosage: 10 MG/DAY
     Route: 048
     Dates: start: 20100812, end: 20110720
  2. AMIODARONE HCL [Suspect]
     Dosage: UNK
     Dates: start: 20110714
  3. AMIODARONE HCL [Suspect]
     Dosage: DOSE INCREASED
     Dates: start: 20110714
  4. DILTIAZEM HYDROCHLORIDE [Suspect]
     Dosage: UNK
     Dates: start: 20110714

REACTIONS (1)
  - Sick sinus syndrome [Recovered/Resolved]
